FAERS Safety Report 6970518-6 (Version None)
Quarter: 2010Q3

REPORT INFORMATION
  Report Type: 
  Country: None (occurrence: None)
  Receive Date: 20100908
  Receipt Date: 20100831
  Transmission Date: 20110219
  Serious: Yes (Life-Threatening, Other)
  Sender: FDA-Public Use
  Company Number: JP-ROCHE-718958

PATIENT
  Sex: Male
  Weight: 60 kg

DRUGS (16)
  1. XELODA [Suspect]
     Indication: COLON CANCER
     Dosage: NOTE: 2 WEEKS ADMINISTRATION FOLLOWED BY 1WEEK REST.
     Route: 048
     Dates: start: 20100604, end: 20100708
  2. XELODA [Interacting]
     Route: 048
     Dates: start: 20100723, end: 20100723
  3. WARFARIN [Interacting]
     Indication: PRODUCT USED FOR UNKNOWN INDICATION
     Dosage: DOSAGE IS UNCERTAIN
     Route: 048
  4. WARFARIN [Interacting]
     Route: 048
  5. SIGMART [Concomitant]
     Route: 048
  6. MARZULENE [Concomitant]
     Dosage: FORM: GRANULATED POWDER
     Route: 048
  7. LUPRAC [Concomitant]
     Route: 048
  8. ASPIRIN [Concomitant]
     Route: 048
  9. MICARDIS [Concomitant]
     Route: 048
  10. DIGOSIN [Concomitant]
     Route: 048
  11. CRESTOR [Concomitant]
     Route: 048
  12. GLUFAST [Concomitant]
     Route: 048
  13. ACTOS [Concomitant]
     Route: 048
  14. MIYA BM [Concomitant]
     Dosage: FORM: MINUTE GRAIN
     Route: 048
  15. GASMOTIN [Concomitant]
     Route: 048
  16. KAYEXALATE [Concomitant]
     Dosage: FORM: POWDERED MEDICINE
     Route: 048

REACTIONS (7)
  - ANAEMIA [None]
  - BLOOD BILIRUBIN INCREASED [None]
  - DRUG INTERACTION [None]
  - MUSCLE HAEMORRHAGE [None]
  - PROTHROMBIN TIME RATIO INCREASED [None]
  - RETROPERITONEAL HAEMORRHAGE [None]
  - SUBDURAL HAEMATOMA [None]
